FAERS Safety Report 15010951 (Version 1)
Quarter: 2018Q2

REPORT INFORMATION
  Report Type: Other
  Country: CA (occurrence: CA)
  Receive Date: 20180614
  Receipt Date: 20180614
  Transmission Date: 20180711
  Serious: Yes (Hospitalization, Other)
  Sender: FDA-Public Use
  Company Number: CA-APOTEX-2018AP015353

PATIENT
  Age: 92 Year
  Sex: Male

DRUGS (5)
  1. OLANZAPINE. [Suspect]
     Active Substance: OLANZAPINE
     Dosage: UNK
     Route: 065
  2. OLANZAPINE. [Suspect]
     Active Substance: OLANZAPINE
     Indication: MAJOR DEPRESSION
     Dosage: 5 MG, QD
     Route: 065
  3. SERTRALINE [Concomitant]
     Active Substance: SERTRALINE HYDROCHLORIDE
     Indication: MAJOR DEPRESSION
     Dosage: UNK
     Route: 065
  4. OLANZAPINE. [Suspect]
     Active Substance: OLANZAPINE
     Dosage: 5 MG, UNK
     Route: 065
  5. OLANZAPINE. [Suspect]
     Active Substance: OLANZAPINE
     Indication: DEPRESSION
     Dosage: 2.5 MG, QD
     Route: 065

REACTIONS (15)
  - Muscular weakness [Recovered/Resolved]
  - Tremor [Recovered/Resolved]
  - Parkinsonism [Unknown]
  - Depression [Recovered/Resolved]
  - Delusion [Recovered/Resolved]
  - Hallucination, visual [Unknown]
  - Orthostatic hypotension [Unknown]
  - Gait disturbance [Recovered/Resolved]
  - Mobility decreased [Recovered/Resolved]
  - Dementia with Lewy bodies [Recovering/Resolving]
  - Abnormal dreams [Unknown]
  - Unmasking of previously unidentified disease [Recovering/Resolving]
  - Product use in unapproved indication [Recovered/Resolved]
  - Drug hypersensitivity [Unknown]
  - Cognitive disorder [Unknown]
